FAERS Safety Report 20485191 (Version 2)
Quarter: 2022Q3

REPORT INFORMATION
  Report Type: Spontaneous
  Country: US (occurrence: US)
  Receive Date: 20220217
  Receipt Date: 20220727
  Transmission Date: 20221027
  Serious: Yes (Hospitalization)
  Sender: FDA-Public Use
  Company Number: US-PFIZER INC-202101630496

PATIENT
  Age: 65 Year
  Sex: Female

DRUGS (1)
  1. IBRANCE [Suspect]
     Active Substance: PALBOCICLIB
     Indication: Breast cancer female
     Dosage: 75 MG, CYCLIC (1 TABLET BY MOUTH ONCE DAILY ON DAYS1-21 FOLLOWED BY 7 DAYS OF REST
     Route: 048

REACTIONS (3)
  - Dyspnoea [Unknown]
  - Hot flush [Unknown]
  - Neuralgia [Unknown]

NARRATIVE: CASE EVENT DATE: 20220401
